FAERS Safety Report 25901182 (Version 2)
Quarter: 2025Q4

REPORT INFORMATION
  Report Type: Report from Study
  Country: US (occurrence: US)
  Receive Date: 20251009
  Receipt Date: 20251128
  Transmission Date: 20260117
  Serious: Yes (Hospitalization)
  Sender: ACADIA PHARMACEUTICALS
  Company Number: US-ACADIA PHARMACEUTICALS INC.-ACA-2025-PIM-010992

PATIENT
  Age: 77 Year
  Sex: Female

DRUGS (9)
  1. NUPLAZID [Suspect]
     Active Substance: PIMAVANSERIN TARTRATE
     Indication: Delusional disorder, unspecified type
     Dosage: 34 MILLIGRAM, QD
     Route: 048
     Dates: start: 20250207
  2. ATIVAN [Concomitant]
     Active Substance: LORAZEPAM
  3. SINEMET [Concomitant]
     Active Substance: CARBIDOPA\LEVODOPA
  4. TYLENOL [Concomitant]
     Active Substance: ACETAMINOPHEN
  5. MACROBID [Concomitant]
     Active Substance: NITROFURANTOIN\NITROFURANTOIN MONOHYDRATE
  6. VITAMIN B12 [Concomitant]
     Active Substance: CYANOCOBALAMIN
  7. ADPIRIN [Concomitant]
  8. SPIRONOLACTONE [Concomitant]
     Active Substance: SPIRONOLACTONE
  9. BISOPROLOL [Concomitant]
     Active Substance: BISOPROLOL

REACTIONS (3)
  - Chronic obstructive pulmonary disease [Unknown]
  - Emphysema [Unknown]
  - Urinary tract infection [Recovered/Resolved]

NARRATIVE: CASE EVENT DATE: 20250920
